FAERS Safety Report 4443678-9 (Version None)
Quarter: 2004Q3

REPORT INFORMATION
  Report Type: 
  Country: None (occurrence: None)
  Receive Date: 20040908
  Receipt Date: 20040827
  Transmission Date: 20050211
  Serious: Yes (Hospitalization, Other)
  Sender: FDA-Public Use
  Company Number: FR-BRISTOL-MYERS SQUIBB COMPANY-12684957

PATIENT
  Age: 6 Month
  Sex: Female

DRUGS (3)
  1. VIDEX [Suspect]
     Route: 064
  2. COMBIVIR [Suspect]
     Route: 064
  3. RETROVIR [Suspect]
     Route: 048

REACTIONS (5)
  - BLOOD LACTIC ACID INCREASED [None]
  - EYELID PTOSIS [None]
  - GROWTH RETARDATION [None]
  - HYPOTONIA [None]
  - PREGNANCY [None]
